FAERS Safety Report 16793824 (Version 12)
Quarter: 2021Q3

REPORT INFORMATION
  Report Type: Report from Study
  Country: CN (occurrence: CN)
  Receive Date: 20190911
  Receipt Date: 20210705
  Transmission Date: 20211014
  Serious: Yes (Hospitalization)
  Sender: FDA-Public Use
  Company Number: CN-ROCHE-2397640

PATIENT
  Age: 53 Year
  Sex: Female
  Weight: 66 kg

DRUGS (63)
  1. COMPOUND GLYCYRRHIZIN (UNK INGREDIENTS) [Concomitant]
     Indication: HEPATIC FUNCTION ABNORMAL
     Dates: start: 20190716, end: 20190718
  2. COMPOUND GLYCYRRHIZIN (UNK INGREDIENTS) [Concomitant]
     Dates: start: 20191009, end: 20191009
  3. REDUCED GLUTATHIONE SODIUM [Concomitant]
     Active Substance: GLUTATHIONE
     Dates: start: 20191009, end: 20191009
  4. SHENG XUE XIAO BAN [Concomitant]
     Dates: start: 20190827
  5. TORASEMIDE [Concomitant]
     Active Substance: TORSEMIDE
     Dates: start: 20190725, end: 20190731
  6. CHLORPHENAMINE MALEATE [Concomitant]
     Active Substance: CHLORPHENIRAMINE MALEATE
     Dates: start: 202002, end: 202002
  7. HYDROCHLOROTHIAZIDE. [Concomitant]
     Active Substance: HYDROCHLOROTHIAZIDE
     Indication: SWELLING
     Dates: start: 20200904, end: 20200911
  8. RECOMBINANT HUMAN GRANULOCYTE COLONY STIMULATING FACTOR (UNK INGREDIEN [Concomitant]
     Dates: start: 20210424, end: 20210424
  9. ZOMETA [Concomitant]
     Active Substance: ZOLEDRONIC ACID
     Dates: start: 20170927
  10. COMPOUND GLYCYRRHIZIN (UNK INGREDIENTS) [Concomitant]
     Indication: BLOOD BILIRUBIN INCREASED
     Dates: start: 20190807, end: 20190807
  11. COMPOUND GLYCYRRHIZIN (UNK INGREDIENTS) [Concomitant]
     Dates: start: 20191030, end: 20191030
  12. COMPOUND GLYCYRRHIZIN (UNK INGREDIENTS) [Concomitant]
     Dates: start: 20201217, end: 20201217
  13. REDUCED GLUTATHIONE SODIUM [Concomitant]
     Active Substance: GLUTATHIONE
     Dates: start: 20190807, end: 20190807
  14. CEFUROXIME SAMMY (UNK INGREDIENTS) [Concomitant]
  15. ESTAZOLAM. [Concomitant]
     Active Substance: ESTAZOLAM
     Dates: start: 202002, end: 202002
  16. SPIRONOLACTONE. [Concomitant]
     Active Substance: SPIRONOLACTONE
     Indication: OEDEMA
     Dates: start: 20200904, end: 20200911
  17. RECOMBINANT HUMAN GRANULOCYTE COLONY STIMULATING FACTOR (UNK INGREDIEN [Concomitant]
     Indication: WHITE BLOOD CELL COUNT DECREASED
     Dates: start: 20210312, end: 20210312
  18. COMPOUND GLYCYRRHIZIN (UNK INGREDIENTS) [Concomitant]
     Dates: start: 20191122, end: 20191123
  19. COMPOUND GLYCYRRHIZIN (UNK INGREDIENTS) [Concomitant]
     Dates: start: 20190829, end: 20190829
  20. REDUCED GLUTATHIONE SODIUM [Concomitant]
     Active Substance: GLUTATHIONE
     Dates: start: 20190918, end: 20190918
  21. REDUCED GLUTATHIONE SODIUM [Concomitant]
     Active Substance: GLUTATHIONE
     Dates: start: 20191212, end: 20191212
  22. REDUCED GLUTATHIONE SODIUM [Concomitant]
     Active Substance: GLUTATHIONE
     Dates: start: 20200101, end: 20200102
  23. POTASSIUM CHLORIDE. [Concomitant]
     Active Substance: POTASSIUM CHLORIDE
     Dates: start: 20190725, end: 20190731
  24. SHENG XUE XIAO BAN [Concomitant]
     Indication: THROMBOCYTOPENIA
     Dates: start: 20190807, end: 20190826
  25. FUROSEMIDE. [Concomitant]
     Active Substance: FUROSEMIDE
     Dates: start: 20190725, end: 20190731
  26. FUROSEMIDE. [Concomitant]
     Active Substance: FUROSEMIDE
     Dates: start: 20200912, end: 20200920
  27. RECOMBINANT HUMAN GRANULOCYTE COLONY STIMULATING FACTOR (UNK INGREDIEN [Concomitant]
     Dates: start: 20210606, end: 20210606
  28. REDUCED GLUTATHIONE SODIUM [Concomitant]
     Active Substance: GLUTATHIONE
     Indication: HEPATIC FUNCTION ABNORMAL
     Dates: start: 20190716, end: 20190718
  29. LEUCOGEN [Concomitant]
     Active Substance: LEUCOGEN
     Indication: PLATELET COUNT DECREASED
     Dates: start: 20200211, end: 20200226
  30. VITAMIN B6 [Concomitant]
     Active Substance: PYRIDOXINE HYDROCHLORIDE
     Dates: start: 202002, end: 202002
  31. ESTAZOLAM. [Concomitant]
     Active Substance: ESTAZOLAM
     Dates: start: 20200813, end: 20200813
  32. RECOMBINANT HUMAN THROMBOPOIETIN (UNK INGREDIENTS) [Concomitant]
     Dates: start: 20200402, end: 20200406
  33. RECOMBINANT HUMAN GRANULOCYTE COLONY STIMULATING FACTOR (UNK INGREDIEN [Concomitant]
     Indication: NEUTROPENIA
     Dates: start: 20200701, end: 20200703
  34. POLYENE PHOSPHATIDYLCHOLINE [Concomitant]
     Active Substance: PHOSPHOLIPID
     Indication: HEPATIC FUNCTION ABNORMAL
     Dates: start: 20180222, end: 20200412
  35. POLYENE PHOSPHATIDYLCHOLINE [Concomitant]
     Active Substance: PHOSPHOLIPID
     Dates: start: 20190708, end: 20190708
  36. CALCIUM CARBONATE;VITAMIN D3 [Concomitant]
     Dates: start: 20190601
  37. COMPOUND GLYCYRRHIZIN (UNK INGREDIENTS) [Concomitant]
     Dates: start: 20190810, end: 20200412
  38. POTASSIUM CHLORIDE. [Concomitant]
     Active Substance: POTASSIUM CHLORIDE
     Dates: start: 202002, end: 202002
  39. LEUCOGEN [Concomitant]
     Active Substance: LEUCOGEN
     Indication: ANAEMIA
     Dates: start: 202002, end: 202002
  40. TRASTUZUMAB EMTANSINE [Suspect]
     Active Substance: ADO-TRASTUZUMAB EMTANSINE
     Indication: BREAST CANCER METASTATIC
     Dosage: DATE OF MOST RECENT DOSE OF TRASTUZUMAB EMTANSINE ADMINISTERED PRIOR TO ONSET OF PULMONARY ARTERIAL
     Route: 042
     Dates: start: 20171019
  41. REDUCED GLUTATHIONE SODIUM [Concomitant]
     Active Substance: GLUTATHIONE
     Dates: start: 20191122, end: 20191123
  42. POTASSIUM CHLORIDE. [Concomitant]
     Active Substance: POTASSIUM CHLORIDE
  43. SHENG XUE XIAO BAN [Concomitant]
     Dates: start: 20190718, end: 20190806
  44. SOMATOSTATIN [Concomitant]
     Active Substance: SOMATOSTATIN
     Indication: HAEMOSTASIS
     Dates: start: 202002, end: 202002
  45. URSODEOXYCHOLIC ACID [Concomitant]
     Active Substance: URSODIOL
     Indication: BLOOD BILIRUBIN INCREASED
     Dates: start: 20200904
  46. RECOMBINANT HUMAN GRANULOCYTE COLONY STIMULATING FACTOR (UNK INGREDIEN [Concomitant]
     Dates: start: 20210514, end: 20210514
  47. RECOMBINANT HUMAN GRANULOCYTE COLONY STIMULATING FACTOR (UNK INGREDIEN [Concomitant]
     Dates: start: 20210628, end: 20210628
  48. BICYCLOL [Concomitant]
     Active Substance: BICYCLOL
     Indication: HEPATIC FUNCTION ABNORMAL
     Dates: start: 20180921, end: 20190809
  49. COMPOUND GLYCYRRHIZIN (UNK INGREDIENTS) [Concomitant]
     Dates: start: 20190918, end: 20190918
  50. REDUCED GLUTATHIONE SODIUM [Concomitant]
     Active Substance: GLUTATHIONE
     Dates: start: 20190829, end: 20190829
  51. VITAMIN C [Concomitant]
     Active Substance: ASCORBIC ACID
     Dates: start: 202002, end: 202002
  52. RECOMBINANT HUMAN GRANULOCYTE COLONY STIMULATING FACTOR (UNK INGREDIEN [Concomitant]
     Indication: NEUTROPHIL COUNT DECREASED
     Dates: start: 20200723, end: 20200723
  53. POLYENE PHOSPHATIDYLCHOLINE [Concomitant]
     Active Substance: PHOSPHOLIPID
     Dates: start: 20190928, end: 20190928
  54. POLYENE PHOSPHATIDYLCHOLINE [Concomitant]
     Active Substance: PHOSPHOLIPID
     Dates: start: 20210130
  55. COMPOUND GLYCYRRHIZIN (UNK INGREDIENTS) [Concomitant]
     Dates: start: 20191212, end: 20191212
  56. COMPOUND GLYCYRRHIZIN (UNK INGREDIENTS) [Concomitant]
     Dates: start: 20200101, end: 20200102
  57. COMPOUND GLYCYRRHIZIN (UNK INGREDIENTS) [Concomitant]
     Dates: start: 20200904
  58. COMPOUND GLYCYRRHIZIN (UNK INGREDIENTS) [Concomitant]
     Dates: start: 20210430, end: 20210430
  59. REDUCED GLUTATHIONE SODIUM [Concomitant]
     Active Substance: GLUTATHIONE
     Dates: start: 20191030, end: 20191030
  60. OCTREOTIDE ACETATE. [Concomitant]
     Active Substance: OCTREOTIDE ACETATE
     Indication: LOWER GASTROINTESTINAL HAEMORRHAGE
     Dates: start: 202002, end: 202002
  61. PANTOPRAZOLE SODIUM. [Concomitant]
     Active Substance: PANTOPRAZOLE SODIUM
     Dates: start: 202002, end: 202002
  62. ESTAZOLAM. [Concomitant]
     Active Substance: ESTAZOLAM
     Dates: start: 20200904, end: 20200904
  63. RECOMBINANT HUMAN GRANULOCYTE COLONY STIMULATING FACTOR (UNK INGREDIEN [Concomitant]
     Dates: start: 20210402, end: 20210402

REACTIONS (1)
  - Pulmonary arterial hypertension [Recovering/Resolving]

NARRATIVE: CASE EVENT DATE: 20190712
